FAERS Safety Report 8600954-3 (Version None)
Quarter: 2012Q3

REPORT INFORMATION
  Report Type: 
  Country: None (occurrence: None)
  Receive Date: 20120817
  Receipt Date: 20120808
  Transmission Date: 20120928
  Serious: No
  Sender: FDA-Public Use
  Company Number: US-B.I. PHARMACEUTICALS,INC./RIDGEFIELD-2011-BP-10441BP

PATIENT
  Age: 70 Year
  Sex: Female

DRUGS (13)
  1. LISINOPRIL [Suspect]
     Indication: HYPERTENSION
     Dosage: 10 MG
     Route: 048
     Dates: start: 20100101
  2. TYLENOL W/ CODEINE [Concomitant]
     Indication: ARTHRITIS
     Route: 048
     Dates: start: 20110101
  3. ATENOLOL [Concomitant]
     Indication: HYPERTENSION
     Dosage: 50 MG
     Route: 048
     Dates: start: 20100101
  4. XANAX [Concomitant]
     Indication: ANXIETY
  5. HYDROCODONE [Concomitant]
     Indication: PAIN
  6. AMBIEN [Concomitant]
     Indication: ANXIETY
  7. CARDIZEM [Concomitant]
     Indication: ATRIAL FIBRILLATION
     Dosage: 120 MG
     Route: 048
     Dates: start: 20100101
  8. HYDRALAZINE HCL [Concomitant]
     Indication: BLOOD PRESSURE ABNORMAL
  9. PRADAXA [Suspect]
     Indication: ATRIAL FIBRILLATION
     Dosage: 300 MG
     Route: 048
     Dates: start: 20110301, end: 20120601
  10. ATENOLOL [Concomitant]
     Indication: CARDIAC DISORDER
  11. NEXIUM [Concomitant]
     Indication: GASTROOESOPHAGEAL REFLUX DISEASE
     Dosage: 40 MG
     Route: 048
     Dates: start: 20100101
  12. PROPAFENONE HCL [Concomitant]
     Indication: CARDIAC DISORDER
  13. PRADAXA [Suspect]
     Dosage: 150 MG
     Route: 048
     Dates: start: 20120601

REACTIONS (7)
  - DECREASED APPETITE [None]
  - DYSPEPSIA [None]
  - WEIGHT INCREASED [None]
  - NAUSEA [None]
  - RENAL IMPAIRMENT [None]
  - MUSCULAR WEAKNESS [None]
  - ASTHENIA [None]
